FAERS Safety Report 9861292 (Version 1)
Quarter: 2014Q1

REPORT INFORMATION
  Report Type: Spontaneous
  Country: US (occurrence: None)
  Receive Date: 20140131
  Receipt Date: 20140131
  Transmission Date: 20141002
  Serious: Yes (Disabling)
  Sender: FDA-Public Use
  Company Number: None

PATIENT
  Age: 61 Year
  Sex: Female
  Weight: 95.26 kg

DRUGS (9)
  1. ATORVASTATIN [Suspect]
     Indication: BLOOD CHOLESTEROL INCREASED
     Route: 048
     Dates: start: 201303, end: 201304
  2. BABY ASPIRIN [Concomitant]
  3. SERTRALINE [Concomitant]
  4. IBUPROFEN [Concomitant]
  5. ANTITISTAMINE [Concomitant]
  6. ASPIRIN [Concomitant]
  7. OPIATE TINCTURE [Concomitant]
  8. XANAX [Concomitant]
  9. METAMUCIL [Concomitant]

REACTIONS (4)
  - Myalgia [None]
  - Asthenia [None]
  - Alanine aminotransferase increased [None]
  - Product substitution issue [None]
